FAERS Safety Report 25225651 (Version 1)
Quarter: 2025Q2

REPORT INFORMATION
  Report Type: Spontaneous
  Country: US (occurrence: US)
  Receive Date: 20250422
  Receipt Date: 20250422
  Transmission Date: 20250717
  Serious: Yes (Other)
  Sender: CHEPLAPHARM
  Company Number: US-ROCHE-10000251060

PATIENT
  Age: 3 Year
  Sex: Female
  Weight: 18.399 kg

DRUGS (5)
  1. CLONAZEPAM [Suspect]
     Active Substance: CLONAZEPAM
     Indication: Seizure
     Route: 048
     Dates: start: 20250307
  2. EVRYSDI [Suspect]
     Active Substance: RISDIPLAM
     Indication: Spinal muscular atrophy
     Dosage: DAILY?DAILY DOSE: 4.6 MILLIGRAM
     Route: 048
     Dates: start: 20250402
  3. XYZAL [Concomitant]
     Active Substance: LEVOCETIRIZINE DIHYDROCHLORIDE
  4. MELATONIN [Concomitant]
     Active Substance: MELATONIN
  5. VALPROATE [Concomitant]
     Active Substance: VALPROIC ACID

REACTIONS (8)
  - Epilepsy [Unknown]
  - Cortical dysplasia [Unknown]
  - Asthenia [Unknown]
  - Muscular weakness [Unknown]
  - Fall [Unknown]
  - Back pain [Unknown]
  - Hypotonia [Unknown]
  - Erythema [Unknown]
